FAERS Safety Report 7409418-6 (Version None)
Quarter: 2011Q1

REPORT INFORMATION
  Report Type: 
  Country: None (occurrence: None)
  Receive Date: 20110301
  Receipt Date: 20100902
  Transmission Date: 20110831
  Serious: Yes (Hospitalization)
  Sender: FDA-Public Use
  Company Number: RB-15015-2010

PATIENT
  Sex: Female

DRUGS (9)
  1. VISTARIL [Concomitant]
  2. KLONOPIN [Concomitant]
  3. SEROQUEL [Concomitant]
  4. TRAZODONE [Concomitant]
  5. SUBOXONE [Suspect]
     Indication: DRUG DEPENDENCE
     Dosage: (16 MG QD SUBLINGUAL), (12 MG QD SUBLINGUAL), (16 MG SUBLINGUAL)
     Route: 060
     Dates: start: 20100709, end: 20100801
  6. SUBOXONE [Suspect]
     Indication: DRUG DEPENDENCE
     Dosage: (16 MG QD SUBLINGUAL), (12 MG QD SUBLINGUAL), (16 MG SUBLINGUAL)
     Route: 060
     Dates: start: 20100801, end: 20100901
  7. SUBOXONE [Suspect]
     Indication: DRUG DEPENDENCE
     Dosage: (16 MG QD SUBLINGUAL), (12 MG QD SUBLINGUAL), (16 MG SUBLINGUAL)
     Route: 060
     Dates: start: 20100901
  8. CELEXA [Concomitant]
  9. DOXAPRAM [Concomitant]

REACTIONS (3)
  - BACK PAIN [None]
  - DYSPNOEA [None]
  - OEDEMA PERIPHERAL [None]
